FAERS Safety Report 8928967 (Version 1)
Quarter: 2012Q4

REPORT INFORMATION
  Report Type: 
  Country: DK (occurrence: ES)
  Receive Date: 20121127
  Receipt Date: 20121127
  Transmission Date: 20130627
  Serious: Yes (Death)
  Sender: FDA-Public Use
  Company Number: ES-FRI-1000040637

PATIENT
  Age: 83 Year
  Sex: Female

DRUGS (6)
  1. ESCITALOPRAM [Suspect]
     Indication: DEPRESSION
     Dosage: 20 mg
     Route: 048
     Dates: start: 20111227, end: 20120521
  2. SEGURIL [Suspect]
     Indication: CARDIAC FAILURE
     Dosage: 40 mg
     Route: 048
     Dates: start: 20111227, end: 20120521
  3. OMEPRAZOLE [Concomitant]
     Indication: PROPHYLAXIS AGAINST GASTROINTESTINAL ULCER
     Route: 048
     Dates: start: 2010, end: 20120521
  4. ATORVASTATIN [Concomitant]
     Indication: DYSLIPIDAEMIA
     Route: 048
     Dates: start: 20111227, end: 20120521
  5. COVERSYL [Concomitant]
     Indication: HYPERTENSION
     Route: 048
     Dates: start: 20111227, end: 20120521
  6. SPIRIVA [Concomitant]
     Indication: CHRONIC OBSTRUCTIVE PULMONARY DISEASE
     Route: 045
     Dates: start: 20111227, end: 20120521

REACTIONS (2)
  - Inappropriate antidiuretic hormone secretion [Fatal]
  - Drug interaction [Fatal]
